FAERS Safety Report 16965827 (Version 1)
Quarter: 2019Q4

REPORT INFORMATION
  Report Type: Report from Study
  Country: CA (occurrence: CA)
  Receive Date: 20191028
  Receipt Date: 20191028
  Transmission Date: 20200122
  Serious: Yes (Other)
  Sender: FDA-Public Use
  Company Number: CA-ORION CORPORATION ORION PHARMA-TREX2019-4697

PATIENT
  Age: 60 Year
  Sex: Male

DRUGS (14)
  1. ENBREL [Concomitant]
     Active Substance: ETANERCEPT
     Route: 058
  2. NAPROXEN. [Concomitant]
     Active Substance: NAPROXEN
     Route: 065
  3. RELAFEN [Concomitant]
     Active Substance: NABUMETONE
     Route: 065
  4. METHOTREXATE (TRADE NAME UNKNOWN) [Suspect]
     Active Substance: METHOTREXATE
     Indication: PRODUCT USED FOR UNKNOWN INDICATION
     Route: 065
  5. COSENTYX [Suspect]
     Active Substance: SECUKINUMAB
     Indication: PSORIATIC ARTHROPATHY
     Route: 058
  6. VIOXX [Concomitant]
     Active Substance: ROFECOXIB
     Route: 065
  7. COSENTYX [Suspect]
     Active Substance: SECUKINUMAB
     Route: 058
  8. IBUPROFEN. [Concomitant]
     Active Substance: IBUPROFEN
     Route: 065
  9. MELOXICAM. [Concomitant]
     Active Substance: MELOXICAM
     Route: 065
  10. SULFASALAZINE. [Concomitant]
     Active Substance: SULFASALAZINE
     Route: 065
  11. PREDNISONE. [Concomitant]
     Active Substance: PREDNISONE
     Route: 065
  12. LEFLUNOMIDE. [Suspect]
     Active Substance: LEFLUNOMIDE
     Indication: PRODUCT USED FOR UNKNOWN INDICATION
     Route: 065
  13. HUMIRA [Concomitant]
     Active Substance: ADALIMUMAB
     Route: 058
  14. SIMPONI [Concomitant]
     Active Substance: GOLIMUMAB
     Route: 065

REACTIONS (2)
  - Psoriatic arthropathy [Unknown]
  - Drug ineffective [Unknown]
